FAERS Safety Report 12753788 (Version 1)
Quarter: 2016Q3

REPORT INFORMATION
  Report Type: Spontaneous
  Country: US (occurrence: US)
  Receive Date: 20160915
  Receipt Date: 20160915
  Transmission Date: 20161109
  Serious: No
  Sender: FDA-Public Use
  Company Number: US-ASTELLAS-2015US045079

PATIENT
  Age: 60 Year
  Sex: Male

DRUGS (3)
  1. LEUPRORELIN [Concomitant]
     Active Substance: LEUPROLIDE ACETATE
     Indication: PRODUCT USED FOR UNKNOWN INDICATION
     Dosage: UNK UNK, ONCE EVERY 3-4 MONTHS
     Route: 065
  2. XTANDI [Suspect]
     Active Substance: ENZALUTAMIDE
     Indication: PROSTATE CANCER METASTATIC
     Route: 048
     Dates: start: 20150529
  3. XTANDI [Suspect]
     Active Substance: ENZALUTAMIDE
     Indication: METASTASES TO BONE

REACTIONS (6)
  - Joint stiffness [Unknown]
  - Fatigue [Unknown]
  - Nausea [Unknown]
  - Hot flush [Unknown]
  - Weight increased [Not Recovered/Not Resolved]
  - Respiratory tract infection [Recovering/Resolving]

NARRATIVE: CASE EVENT DATE: 201511
